FAERS Safety Report 14444512 (Version 1)
Quarter: 2018Q1

REPORT INFORMATION
  Report Type: Spontaneous
  Country: US (occurrence: US)
  Receive Date: 20180125
  Receipt Date: 20180125
  Transmission Date: 20180509
  Serious: Yes (Other)
  Sender: FDA-Public Use
  Company Number: None

PATIENT
  Age: 6 Year
  Sex: Female
  Weight: 20.25 kg

DRUGS (1)
  1. MIRALAX [Suspect]
     Active Substance: POLYETHYLENE GLYCOL 3350
     Indication: CONSTIPATION
     Route: 048
     Dates: start: 20120102, end: 20161002

REACTIONS (4)
  - Psychomotor hyperactivity [None]
  - Abnormal behaviour [None]
  - Sleep terror [None]
  - Anger [None]

NARRATIVE: CASE EVENT DATE: 20130101
